FAERS Safety Report 13841507 (Version 3)
Quarter: 2017Q4

REPORT INFORMATION
  Report Type: Spontaneous
  Country: US (occurrence: US)
  Receive Date: 20170807
  Receipt Date: 20171006
  Transmission Date: 20180320
  Serious: Yes (Other)
  Sender: FDA-Public Use
  Company Number: US-PFIZER INC-2017332608

PATIENT
  Age: 15 Year
  Sex: Male
  Weight: 81.19 kg

DRUGS (2)
  1. XELJANZ [Suspect]
     Active Substance: TOFACITINIB CITRATE
     Indication: ALOPECIA AREATA
  2. XELJANZ [Suspect]
     Active Substance: TOFACITINIB CITRATE
     Indication: DERMATITIS ATOPIC
     Dosage: 5 MG, 2X/DAY
     Route: 048
     Dates: start: 201612, end: 20170611

REACTIONS (8)
  - Drug administered to patient of inappropriate age [Unknown]
  - Hodgkin^s disease [Unknown]
  - Lymphadenopathy [Not Recovered/Not Resolved]
  - Immune system disorder [Unknown]
  - Infectious mononucleosis [Unknown]
  - Insomnia [Unknown]
  - Product use in unapproved indication [Unknown]
  - Epstein-Barr virus infection [Unknown]

NARRATIVE: CASE EVENT DATE: 20170609
